FAERS Safety Report 5633422-1 (Version None)
Quarter: 2008Q1

REPORT INFORMATION
  Report Type: 
  Country: None (occurrence: None)
  Receive Date: 20080221
  Receipt Date: 20080211
  Transmission Date: 20080703
  Serious: Yes (Life-Threatening, Hospitalization)
  Sender: FDA-Public Use
  Company Number: IT-TYCO HEALTHCARE/MALLINCKRODT-T200800171

PATIENT

DRUGS (4)
  1. FLUOXETINE [Suspect]
     Indication: EATING DISORDER
     Dosage: 60 MG, QD
  2. FLUOXETINE [Suspect]
     Dosage: 20 MG, QD
  3. ELETRIPTAN [Suspect]
     Indication: MIGRAINE
     Dosage: 40 MG, QD
  4. ST. JOHN'S WORT [Suspect]

REACTIONS (3)
  - CONVULSION [None]
  - RHABDOMYOLYSIS [None]
  - SEROTONIN SYNDROME [None]
